FAERS Safety Report 19213814 (Version 1)
Quarter: 2021Q2

REPORT INFORMATION
  Report Type: Other
  Country: US (occurrence: US)
  Receive Date: 20210504
  Receipt Date: 20210504
  Transmission Date: 20210717
  Serious: Yes (Other)
  Sender: FDA-Public Use
  Company Number: US-DEXPHARM-20210614

PATIENT
  Age: 71 Year
  Sex: Male

DRUGS (3)
  1. WARFARIN [Interacting]
     Active Substance: WARFARIN
  2. DEXAMETHASONE. [Suspect]
     Active Substance: DEXAMETHASONE
  3. REMDESIVIR. [Interacting]
     Active Substance: REMDESIVIR

REACTIONS (1)
  - Drug interaction [Recovered/Resolved]
